FAERS Safety Report 13408704 (Version 1)
Quarter: 2017Q2

REPORT INFORMATION
  Report Type: Spontaneous
  Country: US (occurrence: US)
  Receive Date: 20170406
  Receipt Date: 20170406
  Transmission Date: 20170830
  Serious: Yes (Other)
  Sender: FDA-Public Use
  Company Number: None

PATIENT
  Age: 54 Year
  Sex: Male
  Weight: 65.25 kg

DRUGS (5)
  1. TRILIPIX [Concomitant]
     Active Substance: FENOFIBRIC ACID
  2. JANUVIA [Concomitant]
     Active Substance: SITAGLIPTIN PHOSPHATE
  3. ZOCOR [Concomitant]
     Active Substance: SIMVASTATIN
  4. GLIPIZIDE/METFORMIN [Suspect]
     Active Substance: GLIPIZIDE\METFORMIN HYDROCHLORIDE
     Indication: DIABETES MELLITUS
     Dosage: ?          QUANTITY:1 TABLET(S);?
     Route: 048
     Dates: start: 20150321, end: 20170402
  5. LOSARTAN. [Concomitant]
     Active Substance: LOSARTAN

REACTIONS (3)
  - Headache [None]
  - Sleep disorder [None]
  - Toothache [None]

NARRATIVE: CASE EVENT DATE: 20170327
